FAERS Safety Report 25635618 (Version 1)
Quarter: 2025Q3

REPORT INFORMATION
  Report Type: Other
  Country: US (occurrence: US)
  Receive Date: 20250802
  Receipt Date: 20250802
  Transmission Date: 20251020
  Serious: Yes (Other)
  Sender: ANI
  Company Number: US-ANIPHARMA-023913

PATIENT
  Age: 51 Year
  Sex: Female

DRUGS (18)
  1. LEUCOVORIN [Suspect]
     Active Substance: LEUCOVORIN\LEUCOVORIN CALCIUM
     Indication: BRCA2 gene mutation
  2. FLUOROURACIL [Concomitant]
     Active Substance: FLUOROURACIL
     Indication: BRCA2 gene mutation
  3. IRINOTECAN [Concomitant]
     Active Substance: IRINOTECAN
     Indication: BRCA2 gene mutation
  4. OXALIPLATIN [Concomitant]
     Active Substance: OXALIPLATIN
     Indication: BRCA2 gene mutation
  5. TRAMETINIB [Concomitant]
     Active Substance: TRAMETINIB
     Indication: BRCA2 gene mutation
  6. GEMCITABINE [Concomitant]
     Active Substance: GEMCITABINE
     Indication: BRCA2 gene mutation
  7. PACLITAXEL [Concomitant]
     Active Substance: PACLITAXEL
     Indication: BRCA2 gene mutation
  8. PACLITAXEL [Concomitant]
     Active Substance: PACLITAXEL
     Indication: Pancreatic carcinoma metastatic
  9. FLUOROURACIL [Concomitant]
     Active Substance: FLUOROURACIL
     Indication: BRCA2 gene mutation
  10. IRINOTECAN [Concomitant]
     Active Substance: IRINOTECAN
     Indication: BRCA2 gene mutation
  11. IRINOTECAN [Concomitant]
     Active Substance: IRINOTECAN
     Indication: Pancreatic carcinoma metastatic
  12. GEMCITABINE [Concomitant]
     Active Substance: GEMCITABINE
     Indication: Pancreatic carcinoma metastatic
  13. TRAMETINIB [Concomitant]
     Active Substance: TRAMETINIB
     Indication: Pancreatic carcinoma metastatic
  14. FLUOROURACIL [Concomitant]
     Active Substance: FLUOROURACIL
     Indication: Pancreatic carcinoma metastatic
  15. OXALIPLATIN [Concomitant]
     Active Substance: OXALIPLATIN
     Indication: Pancreatic carcinoma metastatic
  16. IRINOTECAN [Concomitant]
     Active Substance: IRINOTECAN
     Indication: Pancreatic carcinoma metastatic
  17. FLUOROURACIL [Concomitant]
     Active Substance: FLUOROURACIL
     Indication: Pancreatic carcinoma metastatic
  18. LEUCOVORIN [Suspect]
     Active Substance: LEUCOVORIN\LEUCOVORIN CALCIUM
     Indication: Pancreatic carcinoma metastatic

REACTIONS (1)
  - Neuropathy peripheral [Unknown]
